FAERS Safety Report 25273068 (Version 1)
Quarter: 2025Q2

REPORT INFORMATION
  Report Type: Spontaneous
  Country: US (occurrence: None)
  Receive Date: 20250505
  Receipt Date: 20250505
  Transmission Date: 20250717
  Serious: Yes (Other)
  Sender: FDA-CTU
  Company Number: None

PATIENT
  Age: 50 Year
  Sex: Female

DRUGS (1)
  1. DUPIXENT [Suspect]
     Active Substance: DUPILUMAB
     Indication: Dermatitis
     Route: 058

REACTIONS (5)
  - Erythema [None]
  - Eye swelling [None]
  - Ocular hyperaemia [None]
  - Eye irritation [None]
  - Chapped lips [None]

NARRATIVE: CASE EVENT DATE: 20250504
